FAERS Safety Report 15425211 (Version 1)
Quarter: 2018Q3

REPORT INFORMATION
  Report Type: Spontaneous
  Country: US (occurrence: US)
  Receive Date: 20180919
  Receipt Date: 20180919
  Transmission Date: 20181010
  Serious: Yes (Hospitalization)
  Sender: FDA-Public Use
  Company Number: None

PATIENT
  Age: 61 Year
  Sex: Male
  Weight: 93.1 kg

DRUGS (17)
  1. BENICAR [Concomitant]
     Active Substance: OLMESARTAN MEDOXOMIL
  2. CREON [Concomitant]
     Active Substance: PANCRELIPASE AMYLASE\PANCRELIPASE LIPASE\PANCRELIPASE PROTEASE
  3. IMODIUM [Concomitant]
     Active Substance: LOPERAMIDE HYDROCHLORIDE
  4. NEXIUM [Concomitant]
     Active Substance: ESOMEPRAZOLE MAGNESIUM
  5. SENOKOT?S [Concomitant]
     Active Substance: DOCUSATE SODIUM\SENNOSIDES
  6. SULAR [Concomitant]
     Active Substance: NISOLDIPINE
  7. 5?FLUOROURACIL (5?FU) [Suspect]
     Active Substance: FLUOROURACIL
     Dates: end: 20180823
  8. TRAMADOL. [Concomitant]
     Active Substance: TRAMADOL
  9. ELOXATIN [Suspect]
     Active Substance: OXALIPLATIN
     Dates: end: 20180823
  10. LIORESAL [Concomitant]
     Active Substance: BACLOFEN
  11. LEUCOVORIN CALCIUM. [Suspect]
     Active Substance: LEUCOVORIN CALCIUM
     Dates: end: 20180823
  12. COMPAZINE [Concomitant]
     Active Substance: PROCHLORPERAZINE MALEATE
  13. LIVALO [Concomitant]
     Active Substance: PITAVASTATIN CALCIUM
  14. CAMPTOSAR [Suspect]
     Active Substance: IRINOTECAN HYDROCHLORIDE
     Dates: end: 20180823
  15. AMBIEN [Concomitant]
     Active Substance: ZOLPIDEM TARTRATE
  16. DECADRON [Concomitant]
     Active Substance: DEXAMETHASONE
  17. ZOFRAN?ODT [Concomitant]

REACTIONS (10)
  - Chills [None]
  - Neoplasm [None]
  - Vomiting [None]
  - Enterocolitis [None]
  - Vascular stent stenosis [None]
  - Body temperature increased [None]
  - Fatigue [None]
  - White blood cell count decreased [None]
  - Gastrointestinal wall thickening [None]
  - Asthenia [None]

NARRATIVE: CASE EVENT DATE: 20180906
